FAERS Safety Report 5875423-4 (Version None)
Quarter: 2008Q3

REPORT INFORMATION
  Report Type: 
  Country: None (occurrence: None)
  Receive Date: 20080909
  Receipt Date: 20080902
  Transmission Date: 20090109
  Serious: Yes (Hospitalization, Other)
  Sender: FDA-Public Use
  Company Number: US-AMGEN-US305788

PATIENT
  Sex: Female

DRUGS (6)
  1. PROCRIT [Suspect]
     Indication: RENAL FAILURE CHRONIC
     Dates: start: 20070901
  2. NORVASC [Concomitant]
  3. LIPITOR [Concomitant]
  4. ANAGRELIDE HCL [Concomitant]
  5. CLONIDINE [Concomitant]
  6. ASPIRIN [Concomitant]

REACTIONS (4)
  - ARTERIAL OCCLUSIVE DISEASE [None]
  - CARDIAC FAILURE CONGESTIVE [None]
  - DIZZINESS [None]
  - RENAL ARTERY OCCLUSION [None]
